FAERS Safety Report 21698291 (Version 3)
Quarter: 2023Q2

REPORT INFORMATION
  Report Type: Spontaneous
  Country: IT (occurrence: IT)
  Receive Date: 20221208
  Receipt Date: 20230505
  Transmission Date: 20230721
  Serious: Yes (Hospitalization, Other)
  Sender: FDA-Public Use
  Company Number: IT-SUN PHARMACEUTICAL INDUSTRIES LTD-2022R1-363166

PATIENT
  Sex: Male

DRUGS (5)
  1. MIDAZOLAM [Suspect]
     Active Substance: MIDAZOLAM
     Indication: Seizure
     Dosage: UNK (0.06 MG/KG/HR)
     Route: 065
  2. MIDAZOLAM [Suspect]
     Active Substance: MIDAZOLAM
     Dosage: UNK (0.24 MG/KG/HR)
     Route: 065
  3. LEVETIRACETAM [Suspect]
     Active Substance: LEVETIRACETAM
     Indication: Seizure
     Dosage: 20MG/KG, FOLLOWED BY MAINTENANCE DOSE OF 60MG/(KGDAY)
     Route: 065
  4. FENTANYL [Suspect]
     Active Substance: FENTANYL
     Indication: Hypoxic-ischaemic encephalopathy
     Dosage: 1 UG/(KG/H), TITRATED UP TO 3 UG/(KG/H)
     Route: 065
  5. PHENOBARBITAL [Suspect]
     Active Substance: PHENOBARBITAL
     Indication: Seizure
     Dosage: 20 MG/KG, FOLLOWED BY MAINTENANCE 5 MG/(KG/D)
     Route: 065

REACTIONS (3)
  - Coma [Unknown]
  - Misleading laboratory test result [Unknown]
  - Electroencephalogram abnormal [Recovered/Resolved]
